FAERS Safety Report 5847394-8 (Version None)
Quarter: 2008Q3

REPORT INFORMATION
  Report Type: 
  Country: None (occurrence: None)
  Receive Date: 20080813
  Receipt Date: 20080729
  Transmission Date: 20090109
  Serious: Yes (Hospitalization, Other)
  Sender: FDA-Public Use
  Company Number: 100#08#2008-03831

PATIENT
  Age: 65 Year
  Sex: Male

DRUGS (4)
  1. VOLTAREN [Suspect]
     Indication: OSTEOARTHRITIS
     Dosage: 50 MG TWICE DAILY;
  2. NAYZ (NIMESULIDE) [Concomitant]
  3. CELEBREX [Concomitant]
  4. MOVALIS (MELOXICAM) [Concomitant]

REACTIONS (13)
  - ARTHRALGIA [None]
  - DRUG EFFECT DECREASED [None]
  - DUODENAL SCARRING [None]
  - DUODENAL ULCER [None]
  - DUODENITIS [None]
  - EROSIVE OESOPHAGITIS [None]
  - GASTRITIS [None]
  - GASTRODUODENITIS [None]
  - GASTROOESOPHAGEAL REFLUX DISEASE [None]
  - HYPOAESTHESIA [None]
  - JOINT SWELLING [None]
  - OESOPHAGEAL ULCER [None]
  - REFLUX OESOPHAGITIS [None]
